FAERS Safety Report 24360913 (Version 1)
Quarter: 2024Q3

REPORT INFORMATION
  Report Type: Spontaneous
  Country: FR (occurrence: FR)
  Receive Date: 20240925
  Receipt Date: 20240925
  Transmission Date: 20241016
  Serious: Yes (Other)
  Sender: AUROBINDO
  Company Number: FR-AMGEN-FRASP2023135802

PATIENT
  Age: 32 Year
  Sex: Female

DRUGS (3)
  1. CINACALCET [Suspect]
     Active Substance: CINACALCET
     Indication: Hypercalcaemia
     Dosage: 30 MILLIGRAM, Q8H
     Route: 065
  2. CALCITONIN [Concomitant]
     Active Substance: CALCITONIN
     Indication: Hypercalcaemia
     Dosage: 30 MILLIGRAM, Q8H
     Route: 065
  3. SALINE [Concomitant]
     Active Substance: SODIUM CHLORIDE
     Indication: Hypercalcaemia
     Dosage: 5 LITER OVER IN 24 HOURS
     Route: 065

REACTIONS (2)
  - Parathyroid tumour benign [Recovered/Resolved]
  - Maternal exposure during pregnancy [Unknown]
